FAERS Safety Report 5485067-4 (Version None)
Quarter: 2007Q4

REPORT INFORMATION
  Report Type: 
  Country: None (occurrence: None)
  Receive Date: 20071009
  Receipt Date: 20071009
  Transmission Date: 20080405
  Serious: No
  Sender: FDA-Public Use
  Company Number: None

PATIENT
  Sex: Male
  Weight: 19.1872 kg

DRUGS (2)
  1. ZYRTEC [Suspect]
     Indication: HYPERSENSITIVITY
  2. BENADRYL [Suspect]

REACTIONS (5)
  - COUGH [None]
  - DRUG INEFFECTIVE [None]
  - EYE PRURITUS [None]
  - NASAL CONGESTION [None]
  - RHINORRHOEA [None]
